FAERS Safety Report 19892541 (Version 1)
Quarter: 2021Q3

REPORT INFORMATION
  Report Type: Spontaneous
  Country: JP (occurrence: JP)
  Receive Date: 20210928
  Receipt Date: 20210928
  Transmission Date: 20211014
  Serious: Yes (Hospitalization, Disabling, Other)
  Sender: FDA-Public Use
  Company Number: JP-BAYER-2021A216671

PATIENT
  Age: 22 Year
  Sex: Female

DRUGS (1)
  1. YAZ [Suspect]
     Active Substance: DROSPIRENONE\ETHINYL ESTRADIOL
     Dosage: UNK
     Dates: start: 202010

REACTIONS (4)
  - Carotid artery occlusion [Recovered/Resolved with Sequelae]
  - Hemiplegia [None]
  - Off label use [None]
  - Gait disturbance [None]

NARRATIVE: CASE EVENT DATE: 202010
